FAERS Safety Report 16411045 (Version 1)
Quarter: 2019Q2

REPORT INFORMATION
  Report Type: Spontaneous
  Country: IT (occurrence: IT)
  Receive Date: 20190610
  Receipt Date: 20190610
  Transmission Date: 20190711
  Serious: Yes (Hospitalization)
  Sender: FDA-Public Use
  Company Number: IT-VIIV HEALTHCARE LIMITED-IT2019GSK103245

PATIENT
  Age: 5 Day
  Weight: 3.2 kg

DRUGS (2)
  1. ZIDOVUDINE. [Suspect]
     Active Substance: ZIDOVUDINE
     Indication: ANTIVIRAL PROPHYLAXIS
     Dosage: 1.3 ML, BID
  2. ZIDOVUDINE. [Suspect]
     Active Substance: ZIDOVUDINE
     Dosage: 10.3 ML, BID

REACTIONS (5)
  - Accidental overdose [Unknown]
  - Product communication issue [Unknown]
  - Drug administered in wrong device [Unknown]
  - Product packaging confusion [Unknown]
  - Circumstance or information capable of leading to device use error [Unknown]
